FAERS Safety Report 22144163 (Version 2)
Quarter: 2023Q1

REPORT INFORMATION
  Report Type: Spontaneous
  Country: ES (occurrence: ES)
  Receive Date: 20230327
  Receipt Date: 20230329
  Transmission Date: 20230418
  Serious: Yes (Other)
  Sender: FDA-Public Use
  Company Number: None

PATIENT
  Age: 53 Year
  Sex: Female

DRUGS (1)
  1. RINVOQ [Suspect]
     Active Substance: UPADACITINIB
     Indication: Ankylosing spondylitis
     Dosage: PON?15 MG EXTENDED-RELEASE TABLETS, 28 TABLETS
     Route: 048
     Dates: start: 20220629, end: 20230220

REACTIONS (3)
  - Oedema peripheral [Recovering/Resolving]
  - Fluid retention [Recovered/Resolved]
  - Abnormal weight gain [Recovering/Resolving]

NARRATIVE: CASE EVENT DATE: 20220801
